FAERS Safety Report 6346464-8 (Version None)
Quarter: 2009Q3

REPORT INFORMATION
  Report Type: 
  Country: None (occurrence: None)
  Receive Date: 20090909
  Receipt Date: 20090902
  Transmission Date: 20100115
  Serious: Yes (Hospitalization)
  Sender: FDA-Public Use
  Company Number: IL-WYE-H10818609

PATIENT
  Age: 80 Year
  Sex: Male

DRUGS (3)
  1. TYGACIL [Suspect]
     Indication: OSTEOMYELITIS
     Route: 042
     Dates: start: 20090820, end: 20090820
  2. TYGACIL [Suspect]
     Indication: ACINETOBACTER INFECTION
     Route: 042
     Dates: start: 20090821, end: 20090801
  3. TYGACIL [Suspect]
     Indication: STAPHYLOCOCCAL INFECTION
     Dosage: UNKNOWN
     Route: 042
     Dates: start: 20090801, end: 20090801

REACTIONS (3)
  - DEHYDRATION [None]
  - DIARRHOEA [None]
  - VOMITING [None]
